FAERS Safety Report 4553175-8 (Version None)
Quarter: 2005Q1

REPORT INFORMATION
  Report Type: 
  Country: None (occurrence: None)
  Receive Date: 20050113
  Receipt Date: 20050104
  Transmission Date: 20050727
  Serious: Yes (Hospitalization)
  Sender: FDA-Public Use
  Company Number: 2001AP04758

PATIENT
  Age: 64 Year
  Sex: Male

DRUGS (12)
  1. SEROQUEL [Suspect]
     Indication: SCHIZOPHRENIA
     Dosage: 300 MG BID PO
     Route: 048
     Dates: start: 20010718, end: 20010918
  2. OXYBUTININ [Suspect]
     Dosage: 2.5 MG BID
  3. IBUPROFEN [Concomitant]
  4. LACTULOSE [Concomitant]
  5. TYLENOL [Concomitant]
  6. TEMAZEPAM [Concomitant]
  7. QUININE SULPHATE [Concomitant]
  8. VITAMIN E [Concomitant]
  9. MALIC ACID [Concomitant]
  10. GLANDOSANE [Concomitant]
  11. BENZEXOL HYDROCHLORIDE [Concomitant]
  12. OLANZAPINE [Concomitant]

REACTIONS (9)
  - AGGRESSION [None]
  - BLOOD OSMOLARITY DECREASED [None]
  - BRAIN DAMAGE [None]
  - GRAND MAL CONVULSION [None]
  - HYPONATRAEMIA [None]
  - OBSESSIVE-COMPULSIVE DISORDER [None]
  - PERSONALITY CHANGE [None]
  - POLYDIPSIA [None]
  - THIRST [None]
